FAERS Safety Report 8273493-X (Version None)
Quarter: 2012Q2

REPORT INFORMATION
  Report Type: 
  Country: None (occurrence: None)
  Receive Date: 20120411
  Receipt Date: 20120402
  Transmission Date: 20120825
  Serious: Yes (Other)
  Sender: FDA-Public Use
  Company Number: CA-JNJFOC-20120401066

PATIENT
  Sex: Male

DRUGS (7)
  1. RABEPRAZOLE SODIUM [Concomitant]
     Route: 065
  2. AZATHIOPRINE [Concomitant]
     Route: 065
  3. PAIN KILLERS [Concomitant]
     Route: 065
  4. PENTASA [Concomitant]
     Route: 065
  5. REMICADE [Suspect]
     Indication: CROHN'S DISEASE
     Route: 042
  6. CREON [Concomitant]
     Route: 065
  7. CELEBREX [Concomitant]
     Route: 065

REACTIONS (1)
  - INGUINAL HERNIA [None]
